FAERS Safety Report 21006445 (Version 1)
Quarter: 2022Q2

REPORT INFORMATION
  Report Type: Spontaneous
  Country: US (occurrence: US)
  Receive Date: 20220624
  Receipt Date: 20220624
  Transmission Date: 20220721
  Serious: No
  Sender: FDA-Public Use
  Company Number: US-Amarin Pharma, Inc.-2022AMR001042

PATIENT
  Age: 39 Year
  Sex: Male
  Weight: 79.38 kg

DRUGS (7)
  1. VASCEPA [Suspect]
     Active Substance: ICOSAPENT ETHYL
     Indication: Blood triglycerides increased
     Route: 048
     Dates: start: 2018
  2. GABAPENTIN [Concomitant]
     Active Substance: GABAPENTIN
     Indication: Migraine
     Dates: start: 2012
  3. PAMELOR [Concomitant]
     Active Substance: NORTRIPTYLINE HYDROCHLORIDE
     Indication: Migraine
     Dates: start: 2012
  4. METOPROLOL [Concomitant]
     Active Substance: METOPROLOL
     Indication: Migraine
     Dates: start: 2012
  5. EMGALITY [Concomitant]
     Active Substance: GALCANEZUMAB-GNLM
     Indication: Migraine
     Dates: start: 2019
  6. BOTOX [Concomitant]
     Active Substance: ONABOTULINUMTOXINA
     Indication: Migraine
     Dosage: DOSAGE UNKNOWN
     Dates: start: 2012
  7. OMEPRAZOLE [Concomitant]
     Active Substance: OMEPRAZOLE
     Indication: Migraine

REACTIONS (7)
  - Off label use [Not Recovered/Not Resolved]
  - Dysgeusia [Recovered/Resolved]
  - Product taste abnormal [Recovered/Resolved]
  - Product odour abnormal [Recovered/Resolved]
  - Product physical issue [Unknown]
  - Product physical issue [Unknown]
  - Product packaging issue [Unknown]

NARRATIVE: CASE EVENT DATE: 20220506
